FAERS Safety Report 7749224-6 (Version None)
Quarter: 2011Q3

REPORT INFORMATION
  Report Type: 
  Country: None (occurrence: None)
  Receive Date: 20110908
  Receipt Date: 20110823
  Transmission Date: 20111222
  Serious: Yes (Life-Threatening, Hospitalization)
  Sender: FDA-Public Use
  Company Number: DSA_47480_2011

PATIENT
  Age: 63 Year
  Sex: Male

DRUGS (3)
  1. RAWEL SR [Concomitant]
  2. AMLOPIN /00972401/ [Concomitant]
  3. ENALAPRIL MALEATE [Suspect]
     Indication: HYPERTENSION
     Dosage: (20 MG BID ORAL)
     Route: 048
     Dates: end: 20050805

REACTIONS (2)
  - ANGIOEDEMA [None]
  - STRIDOR [None]
